FAERS Safety Report 7907259-4 (Version None)
Quarter: 2011Q4

REPORT INFORMATION
  Report Type: 
  Country: None (occurrence: None)
  Receive Date: 20111110
  Receipt Date: 20111028
  Transmission Date: 20120403
  Serious: Yes (Hospitalization)
  Sender: FDA-Public Use
  Company Number: US-GLAXOSMITHKLINE-A0798987A

PATIENT
  Sex: Female
  Weight: 93.2 kg

DRUGS (6)
  1. TRIAMTERENE AND HYDROCHLOROTHIAZIDE [Concomitant]
  2. AVANDIA [Suspect]
     Indication: DIABETES MELLITUS
     Dosage: 4MG TWICE PER DAY
     Route: 048
     Dates: start: 20010301, end: 20070126
  3. XANAX [Concomitant]
  4. GLUCOPHAGE [Concomitant]
  5. ZYPREXA [Concomitant]
  6. DILTIAZEM HCL [Concomitant]

REACTIONS (6)
  - CARDIAC FAILURE CONGESTIVE [None]
  - PALPITATIONS [None]
  - CHEST PAIN [None]
  - HEART RATE DECREASED [None]
  - CARDIAC DISORDER [None]
  - CARDIAC FLUTTER [None]
